FAERS Safety Report 17621843 (Version 1)
Quarter: 2020Q2

REPORT INFORMATION
  Report Type: Report from Study
  Country: GB (occurrence: GB)
  Receive Date: 20200403
  Receipt Date: 20200403
  Transmission Date: 20200713
  Serious: Yes (Other)
  Sender: FDA-Public Use
  Company Number: GB-TEVA-2020-GB-1216905

PATIENT
  Sex: Female

DRUGS (4)
  1. COPAXONE [Suspect]
     Active Substance: GLATIRAMER ACETATE
     Indication: MULTIPLE SCLEROSIS
     Route: 058
     Dates: start: 2020
  2. VITAMIN D [Concomitant]
     Active Substance: VITAMIN D NOS
  3. THYROXINE [Concomitant]
     Active Substance: LEVOTHYROXINE
  4. PARACETAMOL [Concomitant]
     Active Substance: ACETAMINOPHEN

REACTIONS (4)
  - Hyperpyrexia [Recovered/Resolved]
  - Headache [Recovered/Resolved]
  - Malaise [Recovered/Resolved]
  - Adverse drug reaction [Recovered/Resolved]
